FAERS Safety Report 8098107-3 (Version None)
Quarter: 2012Q1

REPORT INFORMATION
  Report Type: 
  Country: None (occurrence: None)
  Receive Date: 20120128
  Receipt Date: 20110829
  Transmission Date: 20120608
  Serious: No
  Sender: FDA-Public Use
  Company Number: US-ABBOTT-11P-163-0844914-00

PATIENT
  Sex: Female

DRUGS (13)
  1. METHOTREXATE [Concomitant]
     Indication: RHEUMATOID ARTHRITIS
  2. METHENAMINE HIPPURATE [Concomitant]
     Indication: BLADDER DISORDER
  3. TRAMADOL HCL [Concomitant]
     Indication: PAIN
  4. HUMIRA [Suspect]
     Indication: RHEUMATOID ARTHRITIS
     Dates: start: 20110401
  5. LEVOTHYROXINE SODIUM [Concomitant]
     Indication: BLOOD THYROID STIMULATING HORMONE DECREASED
  6. ZOCOR [Concomitant]
     Indication: BLOOD CHOLESTEROL INCREASED
  7. PREDNISONE [Concomitant]
     Indication: RHEUMATOID ARTHRITIS
  8. ZOLOFT [Concomitant]
     Indication: DEPRESSION
  9. NEURONTIN [Concomitant]
     Indication: NEUROPATHY PERIPHERAL
  10. LEUCOVORIN CALCIUM [Concomitant]
     Indication: PRODUCT USED FOR UNKNOWN INDICATION
  11. TEMAZEPAM [Concomitant]
     Indication: INSOMNIA
  12. ACIPHEX [Concomitant]
     Indication: GASTROOESOPHAGEAL REFLUX DISEASE
  13. HUMIRA [Suspect]
     Indication: PSORIATIC ARTHROPATHY

REACTIONS (8)
  - DRUG INEFFECTIVE [None]
  - JOINT SWELLING [None]
  - ARTHRITIS [None]
  - RASH [None]
  - JOINT EFFUSION [None]
  - NODULE [None]
  - PSORIASIS [None]
  - OPEN WOUND [None]
